FAERS Safety Report 9358908 (Version 2)
Quarter: 2013Q3

REPORT INFORMATION
  Report Type: Report from Study
  Country: DE (occurrence: DE)
  Receive Date: 20130620
  Receipt Date: 20130708
  Transmission Date: 20140515
  Serious: Yes (Death, Hospitalization)
  Sender: FDA-Public Use
  Company Number: DE-AMGEN-DEUNI2013043319

PATIENT
  Age: 67 Year
  Sex: Male

DRUGS (4)
  1. PANITUMUMAB [Suspect]
     Indication: COLORECTAL CANCER METASTATIC
     Dosage: UNK UNK, Q2WK
     Route: 042
     Dates: start: 20130405, end: 20130531
  2. IRINOTECAN [Concomitant]
     Indication: COLORECTAL CANCER METASTATIC
     Dosage: 220 MG, Q2WK
     Route: 042
     Dates: start: 20130404, end: 20130530
  3. FOLINIC ACID [Concomitant]
     Indication: COLORECTAL CANCER METASTATIC
     Dosage: 900 MG, Q2WK
     Route: 042
     Dates: start: 20130404, end: 20130530
  4. 5-FU [Concomitant]
     Indication: COLORECTAL CANCER METASTATIC
     Dosage: 3600 MG, Q3WK
     Route: 042
     Dates: start: 20130404, end: 20130530

REACTIONS (1)
  - General physical health deterioration [Fatal]
